FAERS Safety Report 15379230 (Version 2)
Quarter: 2018Q4

REPORT INFORMATION
  Report Type: Spontaneous
  Country: FR (occurrence: FR)
  Receive Date: 20180913
  Receipt Date: 20180913
  Transmission Date: 20190204
  Serious: Yes (Hospitalization)
  Sender: FDA-Public Use
  Company Number: PHHY2018FR092418

PATIENT
  Age: 88 Year
  Sex: Male

DRUGS (7)
  1. TOBRADEX [Suspect]
     Active Substance: DEXAMETHASONE\TOBRAMYCIN
     Indication: ENDOPHTHALMITIS
     Dosage: 1 GTT, QH
     Route: 047
     Dates: start: 20180815
  2. CEFTAZIDIME PANPHARMA [Concomitant]
     Active Substance: CEFTAZIDIME
     Indication: PSEUDOMONAL BACTERAEMIA
     Dosage: 2 G, Q8H
     Route: 042
     Dates: start: 20180817
  3. TAZOCILLINE [Concomitant]
     Active Substance: PIPERACILLIN SODIUM\TAZOBACTAM SODIUM
     Indication: PSEUDOMONAL BACTERAEMIA
     Route: 042
  4. LEVOFLOXACINE ACCORD [Suspect]
     Active Substance: LEVOFLOXACIN
     Indication: PSEUDOMONAL BACTERAEMIA
     Dosage: 2 ?G/L, QD
     Route: 048
     Dates: start: 20180815
  5. DEXAMETHASONE. [Suspect]
     Active Substance: DEXAMETHASONE
     Indication: ENDOPHTHALMITIS
     Dosage: NON RENSEIGN?E
     Route: 057
  6. ATROPINE SULFATE. [Suspect]
     Active Substance: ATROPINE SULFATE
     Indication: ENDOPHTHALMITIS
     Dosage: 2 OT, QD
     Route: 047
     Dates: start: 20180815
  7. PIPERACILLINE PANPHARMA [Suspect]
     Active Substance: PIPERACILLIN SODIUM
     Indication: PSEUDOMONAL BACTERAEMIA
     Dosage: UNK
     Route: 042

REACTIONS (1)
  - Delusion [Not Recovered/Not Resolved]

NARRATIVE: CASE EVENT DATE: 20180815
